FAERS Safety Report 9082047 (Version 1)
Quarter: 2013Q1

REPORT INFORMATION
  Report Type: Report from Study
  Country: US (occurrence: US)
  Receive Date: 20130130
  Receipt Date: 20130130
  Transmission Date: 20140127
  Serious: No
  Sender: FDA-Public Use
  Company Number: US-ABBOTT-12P-163-0961666-00

PATIENT
  Age: 69 Year
  Sex: Female

DRUGS (21)
  1. HUMIRA [Suspect]
     Indication: CROHN^S DISEASE
     Dates: start: 20120628
  2. VITAMIN B12 [Concomitant]
     Indication: PRODUCT USED FOR UNKNOWN INDICATION
     Route: 050
  3. AMBIEN [Concomitant]
     Indication: INSOMNIA
  4. PREDNISONE [Concomitant]
     Indication: RASH
     Route: 048
  5. ADDERALL [Concomitant]
     Indication: ATTENTION DEFICIT/HYPERACTIVITY DISORDER
     Route: 048
  6. ASA [Concomitant]
     Indication: PRODUCT USED FOR UNKNOWN INDICATION
  7. BYSTOLIC [Concomitant]
     Indication: BLOOD PRESSURE
     Route: 048
  8. ESTRADIOL [Concomitant]
     Indication: HORMONE REPLACEMENT THERAPY
     Route: 048
  9. SYNTHROID [Concomitant]
     Indication: HORMONE REPLACEMENT THERAPY
     Route: 048
  10. LOSARTAN [Concomitant]
     Indication: BLOOD PRESSURE
     Route: 048
  11. SINGULAR [Concomitant]
     Indication: HYPERSENSITIVITY
     Route: 048
  12. HYDROCHLOORTHIAZIDE [Concomitant]
     Indication: BLOOD PRESSURE
     Route: 048
  13. OMEPRAZOLE [Concomitant]
     Indication: GASTROOESOPHAGEAL REFLUX DISEASE
     Route: 048
  14. DOXEPIN HAL [Concomitant]
     Indication: INSOMNIA
     Route: 048
  15. BUDESONIDE [Concomitant]
     Indication: CROHN^S DISEASE
     Route: 048
  16. LIPITOR [Concomitant]
     Indication: BLOOD CHOLESTEROL INCREASED
     Route: 048
  17. DETROL [Concomitant]
     Indication: POLLAKIURIA
     Route: 048
  18. INHALER [Concomitant]
     Indication: ASTHMA
  19. CITALOPRAM [Concomitant]
     Indication: DEPRESSION
     Route: 048
  20. MELOXICAM [Concomitant]
     Indication: ARTHRITIS
     Route: 048
  21. ASACOL [Concomitant]
     Indication: CROHN^S DISEASE
     Route: 048

REACTIONS (1)
  - Injection site pain [Recovered/Resolved]
